FAERS Safety Report 7134480-8 (Version None)
Quarter: 2010Q4

REPORT INFORMATION
  Report Type: 
  Country: None (occurrence: None)
  Receive Date: 20101203
  Receipt Date: 20101130
  Transmission Date: 20110411
  Serious: Yes (Life-Threatening, Hospitalization, Disabling, Other)
  Sender: FDA-Public Use
  Company Number: JP-PFIZER INC-2010138882

PATIENT
  Age: 75 Year
  Sex: Male
  Weight: 51.2 kg

DRUGS (19)
  1. VFEND [Suspect]
     Indication: SEPSIS
     Dosage: 350 MG, 2X/DAY
     Route: 041
     Dates: start: 20101027, end: 20101027
  2. VFEND [Suspect]
     Indication: SYSTEMIC CANDIDA
     Dosage: 200 MG, 2X/DAY
     Route: 041
     Dates: start: 20101028, end: 20101102
  3. VFEND [Suspect]
     Dosage: 150 MG, 2X/DAY
     Route: 041
     Dates: start: 20101103, end: 20101125
  4. METHOTREXATE SODIUM [Suspect]
     Indication: CENTRAL NERVOUS SYSTEM LYMPHOMA
     Dosage: 500 MG, DAY
     Route: 041
     Dates: start: 20101025, end: 20101025
  5. LEUCOVORIN [Suspect]
     Indication: DRUG DETOXIFICATION
     Dosage: 15 ML X 6 TO 8 TIMES, DAY
     Route: 041
     Dates: start: 20101025, end: 20101027
  6. MEROPENEM [Suspect]
     Indication: SEPSIS
     Dosage: 3 G, DAY
     Route: 041
     Dates: start: 20101027, end: 20101110
  7. MEROPENEM [Suspect]
     Indication: FEBRILE NEUTROPENIA
  8. MEYLON [Suspect]
     Indication: DRUG DETOXIFICATION
     Dosage: 40 ML, 3-4 TIMES
     Route: 041
     Dates: start: 20101025, end: 20101026
  9. MEYLON [Suspect]
     Indication: PROPHYLAXIS
  10. DIAMOX [Suspect]
     Indication: PROPHYLAXIS
     Dosage: 500 MG, 1X/DAY
     Route: 041
     Dates: start: 20101025, end: 20101027
  11. FULCALIQ [Suspect]
     Indication: NUTRITIONAL SUPPORT
     Dosage: 1003 ML, DAY
     Route: 041
     Dates: start: 20100817, end: 20101027
  12. BICARBON [Suspect]
     Indication: DETOXIFICATION
     Dosage: 500 ML, 3-4 TIMES
     Route: 041
     Dates: start: 20101025, end: 20101026
  13. SAXIZON [Concomitant]
     Indication: PYREXIA
     Dosage: 100 MG, 1-2 TIMES
     Dates: start: 20101026
  14. SAXIZON [Concomitant]
     Indication: PAIN
  15. TPN ELECTROLYTES IN PLASTIC CONTAINER [Concomitant]
     Indication: NUTRITIONAL SUPPORT
     Dosage: 500 ML, 3X/DAY
     Route: 041
     Dates: start: 20101027
  16. TIMOPTOL [Concomitant]
     Indication: GLAUCOMA
     Dosage: 1 GTT, 1X/DAY
     Route: 031
     Dates: start: 20070101
  17. XALATAN [Concomitant]
     Dosage: 1 UNK, 1X/DAY
     Route: 031
     Dates: start: 20070101
  18. AZOPT [Concomitant]
     Indication: GLAUCOMA
     Dosage: 1 GTT, 2X/DAY
     Route: 031
     Dates: start: 20070101
  19. HYALEIN [Concomitant]
     Indication: CONJUNCTIVAL DISORDER
     Dosage: 1 UNK, 4-5 TIMES
     Route: 031
     Dates: start: 20101101

REACTIONS (7)
  - BLOOD BETA-D-GLUCAN INCREASED [None]
  - BLOOD POTASSIUM DECREASED [None]
  - DIABETES INSIPIDUS [None]
  - ENDOPHTHALMITIS [None]
  - HEPATIC FUNCTION ABNORMAL [None]
  - NEUTROPENIA [None]
  - PYREXIA [None]
